FAERS Safety Report 7190583-3 (Version None)
Quarter: 2010Q4

REPORT INFORMATION
  Report Type: 
  Country: None (occurrence: None)
  Receive Date: 20101221
  Receipt Date: 20101221
  Transmission Date: 20110411
  Serious: Yes (Life-Threatening, Other)
  Sender: FDA-Public Use
  Company Number: None

PATIENT
  Age: 33 Year
  Sex: Female
  Weight: 83.9154 kg

DRUGS (8)
  1. SERTRALINE HYDROCHLORIDE [Suspect]
     Indication: TRAUMATIC BRAIN INJURY
     Dosage: 50MG - ^HALF A TABLET^ 1 X DAY @ BEDTIME PO
     Route: 048
     Dates: start: 20101202, end: 20101210
  2. SERTRALINE HYDROCHLORIDE [Suspect]
     Indication: TRAUMATIC BRAIN INJURY
     Dosage: 50 MG 1 X DAY @ BEDTIME PO
     Route: 048
     Dates: start: 20101211, end: 20101217
  3. TRAMADOL HCL [Concomitant]
  4. NAPROXEN [Concomitant]
  5. NORTRIPTYLINE HCL [Concomitant]
  6. DOCUSATE SODIUM [Concomitant]
  7. SUMATRIPTAN [Concomitant]
  8. ALLEGRA D 24 HOUR [Concomitant]

REACTIONS (15)
  - AFFECT LABILITY [None]
  - AGITATION [None]
  - ANXIETY [None]
  - CRYING [None]
  - EMOTIONAL DISORDER [None]
  - FATIGUE [None]
  - FEAR [None]
  - FEELING ABNORMAL [None]
  - FEELING GUILTY [None]
  - HALLUCINATIONS, MIXED [None]
  - INSOMNIA [None]
  - LOGORRHOEA [None]
  - PARANOIA [None]
  - PSYCHOTIC DISORDER [None]
  - RESTLESSNESS [None]
